FAERS Safety Report 8159912-8 (Version None)
Quarter: 2012Q1

REPORT INFORMATION
  Report Type: 
  Country: None (occurrence: None)
  Receive Date: 20120103
  Receipt Date: 20111122
  Transmission Date: 20120608
  Serious: No
  Sender: FDA-Public Use
  Company Number: AE-2011-003900

PATIENT
  Age: 37 Year
  Sex: Male
  Weight: 92.9874 kg

DRUGS (6)
  1. PEGASYS [Concomitant]
  2. RIBAVIRIN [Concomitant]
  3. NEXIUM [Concomitant]
  4. INCIVEK [Suspect]
     Dosage: 2250 MG (750 MG, 1 IN 8 HR)
     Dates: start: 20111111
  5. TYENOL (PARACETAMOL) [Concomitant]
  6. PERCOCET [Concomitant]

REACTIONS (4)
  - ASTHENIA [None]
  - HYPERHIDROSIS [None]
  - INFLUENZA LIKE ILLNESS [None]
  - SKIN EXFOLIATION [None]
